FAERS Safety Report 19967433 (Version 1)
Quarter: 2021Q4

REPORT INFORMATION
  Report Type: Spontaneous
  Country: RO (occurrence: RO)
  Receive Date: 20211019
  Receipt Date: 20211019
  Transmission Date: 20220303
  Serious: Yes (Other)
  Sender: FDA-Public Use
  Company Number: RO-009507513-2110ROM003964

PATIENT
  Sex: Male

DRUGS (1)
  1. INTRON A [Suspect]
     Active Substance: INTERFERON ALFA-2B
     Indication: Hairy cell leukaemia
     Dosage: 18 MILLLION U.I., 3 MILLILITER

REACTIONS (1)
  - Hairy cell leukaemia recurrent [Unknown]
